FAERS Safety Report 7196837-9 (Version None)
Quarter: 2010Q4

REPORT INFORMATION
  Report Type: 
  Country: None (occurrence: None)
  Receive Date: 20101223
  Receipt Date: 20101129
  Transmission Date: 20110411
  Serious: No
  Sender: FDA-Public Use
  Company Number: US-AMGEN-TCS443937

PATIENT

DRUGS (1)
  1. ENBREL [Suspect]
     Indication: RHEUMATOID ARTHRITIS
     Dosage: 50 MG, QWK
     Route: 058
     Dates: start: 20100910

REACTIONS (6)
  - ABDOMINAL PAIN [None]
  - BACK PAIN [None]
  - FALL [None]
  - GAIT DISTURBANCE [None]
  - PAIN [None]
  - SCRATCH [None]
